FAERS Safety Report 6723563-X (Version None)
Quarter: 2010Q2

REPORT INFORMATION
  Report Type: 
  Country: None (occurrence: None)
  Receive Date: 20100511
  Receipt Date: 20100503
  Transmission Date: 20101027
  Serious: Yes (Other)
  Sender: FDA-Public Use
  Company Number: 2010SP023691

PATIENT
  Age: 40 Year
  Sex: Female
  Weight: 85 kg

DRUGS (9)
  1. ESMERON (ROCURONIUM BROMIDE / 01245702 / ) [Suspect]
     Indication: NEUROMUSCULAR BLOCKING THERAPY
     Dosage: 60 MG
     Dates: start: 20100420
  2. FENTANYL [Concomitant]
  3. SUXAMETHONIUM [Concomitant]
  4. PROPOFOL [Concomitant]
  5. MORPHINE [Concomitant]
  6. AMPICILLIN [Concomitant]
  7. GENTAMICIN [Concomitant]
  8. ISOFLURANE [Concomitant]
  9. FLAGYL [Concomitant]

REACTIONS (1)
  - NEUROMUSCULAR BLOCK PROLONGED [None]
